FAERS Safety Report 13442722 (Version 1)
Quarter: 2017Q2

REPORT INFORMATION
  Report Type: Spontaneous
  Country: US (occurrence: US)
  Receive Date: 20170414
  Receipt Date: 20170414
  Transmission Date: 20170830
  Serious: Yes (Other)
  Sender: FDA-Public Use
  Company Number: None

PATIENT
  Age: 51 Year
  Sex: Male
  Weight: 78 kg

DRUGS (1)
  1. PROHANCE [Suspect]
     Active Substance: GADOTERIDOL
     Indication: SCAN WITH CONTRAST
     Route: 042
     Dates: start: 20160921

REACTIONS (6)
  - Pallor [None]
  - Cold sweat [None]
  - Contrast media reaction [None]
  - Nausea [None]
  - Syncope [None]
  - Retching [None]

NARRATIVE: CASE EVENT DATE: 20160921
